FAERS Safety Report 12668843 (Version 3)
Quarter: 2016Q4

REPORT INFORMATION
  Report Type: Report from Study
  Country: US (occurrence: US)
  Receive Date: 20160819
  Receipt Date: 20161013
  Transmission Date: 20170207
  Serious: Yes (Other)
  Sender: FDA-Public Use
  Company Number: US-JNJFOC-20160417546

PATIENT
  Sex: Male

DRUGS (3)
  1. AMIODARONE [Concomitant]
     Active Substance: AMIODARONE
  2. CALCITROL [Concomitant]
     Active Substance: CALCITRIOL
  3. IMBRUVICA [Suspect]
     Active Substance: IBRUTINIB
     Indication: MANTLE CELL LYMPHOMA
     Route: 048
     Dates: start: 20160122

REACTIONS (6)
  - Fatigue [Unknown]
  - Stress polycythaemia [Unknown]
  - Contusion [Unknown]
  - Pain in extremity [Unknown]
  - Peripheral swelling [Unknown]
  - Neuralgia [Unknown]

NARRATIVE: CASE EVENT DATE: 2016
